FAERS Safety Report 5032235-1 (Version None)
Quarter: 2006Q2

REPORT INFORMATION
  Report Type: 
  Country: None (occurrence: None)
  Receive Date: 20060619
  Receipt Date: 20060606
  Transmission Date: 20061013
  Serious: Yes (Other)
  Sender: FDA-Public Use
  Company Number: HQWYE154321OCT05

PATIENT
  Age: 47 Year
  Sex: Female

DRUGS (4)
  1. PREMPHASE 14/14 [Suspect]
     Indication: HORMONE REPLACEMENT THERAPY
  2. ESTRADIOL [Suspect]
     Indication: HORMONE REPLACEMENT THERAPY
  3. NORETHINDRONE ACETATE [Suspect]
     Indication: HORMONE REPLACEMENT THERAPY
  4. PREMARIN [Suspect]
     Indication: OESTROGEN REPLACEMENT THERAPY

REACTIONS (9)
  - BREAST CANCER METASTATIC [None]
  - BREAST CYST [None]
  - MASTITIS [None]
  - METASTASES TO LYMPH NODES [None]
  - NUCLEAR MAGNETIC RESONANCE IMAGING ABNORMAL [None]
  - OESTROGEN RECEPTOR ASSAY POSITIVE [None]
  - PROGESTERONE RECEPTOR ASSAY POSITIVE [None]
  - SCAR [None]
  - SEROMA [None]
